FAERS Safety Report 11641642 (Version 2)
Quarter: 2015Q4

REPORT INFORMATION
  Report Type: Spontaneous
  Country: JP (occurrence: JP)
  Receive Date: 20151019
  Receipt Date: 20151021
  Transmission Date: 20160304
  Serious: Yes (Life-Threatening, Other)
  Sender: FDA-Public Use
  Company Number: JP-PFIZER INC-2015139458

PATIENT
  Age: 50 Year
  Sex: Female
  Weight: 62.5 kg

DRUGS (3)
  1. ATELEC [Suspect]
     Active Substance: CILNIDIPINE
     Indication: HYPERTENSION
     Dosage: UNK
  2. CELECOX [Suspect]
     Active Substance: CELECOXIB
     Indication: BACK PAIN
     Dosage: 100 MG, 2X/DAY
     Route: 048
     Dates: start: 20150420, end: 20150420
  3. LOXONIN [Suspect]
     Active Substance: LOXOPROFEN SODIUM
     Indication: BACK PAIN
     Dosage: UNK
     Route: 062
     Dates: start: 20150420

REACTIONS (8)
  - Pharyngeal disorder [Unknown]
  - Asthenia [Recovering/Resolving]
  - Drug hypersensitivity [Unknown]
  - Local swelling [Unknown]
  - Hypoaesthesia [Recovering/Resolving]
  - Dyspnoea [Recovered/Resolved]
  - Pharyngeal oedema [Recovering/Resolving]
  - Erythema [Unknown]

NARRATIVE: CASE EVENT DATE: 20150420
